FAERS Safety Report 5232704-5 (Version None)
Quarter: 2007Q1

REPORT INFORMATION
  Report Type: 
  Country: None (occurrence: None)
  Receive Date: 20070206
  Receipt Date: 20070206
  Transmission Date: 20070707
  Serious: Yes (Hospitalization)
  Sender: FDA-Public Use
  Company Number: None

PATIENT
  Age: 31 Year
  Sex: Female
  Weight: 81.6475 kg

DRUGS (1)
  1. NUVARING [Suspect]
     Indication: CONTRACEPTION
     Dosage: ONE   EVERY 3 WEEKS    VAG
     Route: 067
     Dates: start: 20060611, end: 20061117

REACTIONS (2)
  - SUBARACHNOID HAEMORRHAGE [None]
  - VENOUS THROMBOSIS LIMB [None]
